FAERS Safety Report 11174246 (Version 1)
Quarter: 2015Q2

REPORT INFORMATION
  Report Type: Spontaneous
  Country: US (occurrence: None)
  Receive Date: 20150608
  Receipt Date: 20150608
  Transmission Date: 20150821
  Serious: Yes (Other)
  Sender: FDA-Public Use
  Company Number: None

PATIENT
  Age: 64 Year
  Sex: Female

DRUGS (5)
  1. AMANTADINE (SYMMETREL) [Concomitant]
  2. NEURONTIN [Concomitant]
     Active Substance: GABAPENTIN
  3. AMPYRA [Suspect]
     Active Substance: DALFAMPRIDINE
     Indication: MULTIPLE SCLEROSIS
     Route: 048
     Dates: start: 201107
  4. INTERFERON BETA-1A [Concomitant]
     Active Substance: INTERFERON BETA-1A
  5. ALBUMIN (REBIF, WITH ALBUMIN) [Concomitant]

REACTIONS (1)
  - Escherichia urinary tract infection [None]

NARRATIVE: CASE EVENT DATE: 20150512
